FAERS Safety Report 8188944-9 (Version None)
Quarter: 2012Q1

REPORT INFORMATION
  Report Type: 
  Country: None (occurrence: None)
  Receive Date: 20120306
  Receipt Date: 20120229
  Transmission Date: 20120608
  Serious: Yes (Other)
  Sender: FDA-Public Use
  Company Number: US-AMGEN-USASP2011024870

PATIENT
  Age: 67 Year
  Sex: Female
  Weight: 76.65 kg

DRUGS (3)
  1. CALCIUM [Concomitant]
     Dosage: UNK
  2. FLONASE [Concomitant]
     Dosage: UNK
  3. PROLIA [Suspect]
     Indication: OSTEOPOROSIS
     Dosage: UNK UNK, ONE TIME DOSE
     Route: 058
     Dates: start: 20100102

REACTIONS (1)
  - RENAL AMYLOIDOSIS [None]
